FAERS Safety Report 6637589-8 (Version None)
Quarter: 2010Q1

REPORT INFORMATION
  Report Type: 
  Country: None (occurrence: None)
  Receive Date: 20100311
  Receipt Date: 20100227
  Transmission Date: 20100710
  Serious: Yes (Hospitalization, Other)
  Sender: FDA-Public Use
  Company Number: 2010SCPR000401

PATIENT
  Age: 75 Year
  Sex: Female

DRUGS (5)
  1. IBUPROFEN [Suspect]
     Indication: ASTHENIA
  2. IBUPROFEN [Suspect]
     Indication: PARAESTHESIA
  3. AMOXICILLIN CLAVULANIC ACID (AMOXICILLIN TRIHYDRATE, CLAVULANATE POTAS [Concomitant]
  4. FUROSEMIDE [Concomitant]
  5. ANTIBIOTICS (ANTIBIOTICS) [Concomitant]

REACTIONS (8)
  - ASTHENIA [None]
  - DEHYDRATION [None]
  - DRUG INEFFECTIVE [None]
  - ELECTROLYTE IMBALANCE [None]
  - HYPERKALAEMIA [None]
  - PARAESTHESIA [None]
  - QUADRIPARESIS [None]
  - RENAL FAILURE ACUTE [None]
